FAERS Safety Report 9820521 (Version 1)
Quarter: 2014Q1

REPORT INFORMATION
  Report Type: Spontaneous
  Country: AT (occurrence: AT)
  Receive Date: 20140116
  Receipt Date: 20140116
  Transmission Date: 20141002
  Serious: Yes (Life-Threatening)
  Sender: FDA-Public Use
  Company Number: AT-PFIZER INC-2014009496

PATIENT
  Age: 15 Year
  Sex: Male
  Weight: 90 kg

DRUGS (3)
  1. TAZONAM [Suspect]
     Indication: STAPHYLOCOCCAL INFECTION
     Dosage: 1 DF, 3X/DAY
     Dates: start: 20131211, end: 20131230
  2. NOVALGIN [Interacting]
     Indication: PAIN
     Dosage: 1 G, 2X/DAY
     Route: 042
     Dates: start: 20131121, end: 20131209
  3. NOVALGIN [Interacting]
     Indication: PYREXIA

REACTIONS (2)
  - Drug interaction [Recovering/Resolving]
  - Pancytopenia [Recovering/Resolving]
